FAERS Safety Report 17202976 (Version 2)
Quarter: 2020Q1

REPORT INFORMATION
  Report Type: Spontaneous
  Country: NL (occurrence: NL)
  Receive Date: 20191226
  Receipt Date: 20200110
  Transmission Date: 20200409
  Serious: No
  Sender: FDA-Public Use
  Company Number: NL-RARE DISEASE THERAPEUTICS, INC.-2078194

PATIENT
  Age: 24 Year
  Sex: Male

DRUGS (7)
  1. CYTARABINE. [Concomitant]
     Active Substance: CYTARABINE
  2. VINBLASTINE [Concomitant]
     Active Substance: VINBLASTINE
  3. PURIXAN [Suspect]
     Active Substance: MERCAPTOPURINE
     Indication: LANGERHANS^ CELL HISTIOCYTOSIS
  4. CLADRIBINE DCI [Concomitant]
     Active Substance: CLADRIBINE
  5. PREDNISOLONE. [Concomitant]
     Active Substance: PREDNISOLONE
  6. VEMURAFENIB. [Concomitant]
     Active Substance: VEMURAFENIB
  7. ANAKINRA [Concomitant]
     Active Substance: ANAKINRA

REACTIONS (1)
  - Off label use [None]
